FAERS Safety Report 25591999 (Version 3)
Quarter: 2025Q3

REPORT INFORMATION
  Report Type: Report from Study
  Country: BR (occurrence: BR)
  Receive Date: 20250722
  Receipt Date: 20250925
  Transmission Date: 20251020
  Serious: Yes (Other)
  Sender: AMGEN
  Company Number: BR-AMGEN-BRASL2025118077

PATIENT
  Age: 49 Year
  Sex: Female

DRUGS (2)
  1. VECTIBIX [Suspect]
     Active Substance: PANITUMUMAB
     Indication: Product used for unknown indication
     Route: 065
  2. VECTIBIX [Suspect]
     Active Substance: PANITUMUMAB
     Route: 065

REACTIONS (14)
  - Neuropathy peripheral [Unknown]
  - Dysphonia [Unknown]
  - Weight increased [Recovering/Resolving]
  - Nasal ulcer [Unknown]
  - Eyelid margin crusting [Unknown]
  - Eye discharge [Unknown]
  - Mouth ulceration [Unknown]
  - Erythema [Recovering/Resolving]
  - Dermatitis [Recovering/Resolving]
  - Acne [Unknown]
  - Skin lesion [Recovering/Resolving]
  - Nausea [Recovering/Resolving]
  - Hypotension [Recovering/Resolving]
  - Fatigue [Recovering/Resolving]
